FAERS Safety Report 5023687-1 (Version None)
Quarter: 2006Q2

REPORT INFORMATION
  Report Type: 
  Country: None (occurrence: None)
  Receive Date: 20060606
  Receipt Date: 20060522
  Transmission Date: 20061013
  Serious: Yes (Other)
  Sender: FDA-Public Use
  Company Number: HQWYE774503AUG04

PATIENT
  Age: 60 Year
  Sex: Female
  Weight: 77.18 kg

DRUGS (9)
  1. PREMPRO [Suspect]
     Indication: HOT FLUSH
     Dates: start: 19950101, end: 20010101
  2. PREMPRO [Suspect]
     Indication: OSTEOPOROSIS
     Dates: start: 19950101, end: 20010101
  3. PREMPRO [Suspect]
     Indication: PROPHYLAXIS
     Dates: start: 19950101, end: 20010101
  4. CYCRIN [Suspect]
  5. PREMARIN [Suspect]
     Dates: start: 19910101, end: 19950101
  6. PREMARIN [Suspect]
     Dates: start: 19990101
  7. PREMARIN [Suspect]
     Dates: start: 20000101
  8. PROVERA [Suspect]
     Dates: start: 19910101, end: 19950101
  9. VERAPAMIL [Concomitant]

REACTIONS (14)
  - ACQUIRED DIAPHRAGMATIC EVENTRATION [None]
  - ANXIETY [None]
  - BREAST CANCER METASTATIC [None]
  - BREAST FIBROSIS [None]
  - BREAST MASS [None]
  - CHOLELITHIASIS [None]
  - COLLAPSE OF LUNG [None]
  - DEPRESSION [None]
  - FAT NECROSIS [None]
  - HEPATIC STEATOSIS [None]
  - INFECTION [None]
  - OESTROGEN RECEPTOR ASSAY POSITIVE [None]
  - PROGESTERONE RECEPTOR ASSAY POSITIVE [None]
  - RENAL CYST [None]
